FAERS Safety Report 15156536 (Version 1)
Quarter: 2018Q3

REPORT INFORMATION
  Report Type: Spontaneous
  Country: DE (occurrence: DE)
  Receive Date: 20180717
  Receipt Date: 20180717
  Transmission Date: 20181010
  Serious: Yes (Life-Threatening, Hospitalization, Other)
  Sender: FDA-Public Use
  Company Number: DE-009507513-1807DEU006378

PATIENT
  Age: 81 Year
  Sex: Female
  Weight: 77 kg

DRUGS (8)
  1. SIMVASTATIN. [Concomitant]
     Active Substance: SIMVASTATIN
     Dosage: DAILY DOSE: 20 MG MILLGRAM(S) EVERY DAYS
  2. ALENDRONATE SODIUM. [Suspect]
     Active Substance: ALENDRONATE SODIUM
     Dosage: DAILY DOSE: 70 MG MILLGRAM(S) EVERY WEEKS
  3. AMLODIPINE [Concomitant]
     Active Substance: AMLODIPINE BESYLATE
     Dosage: DAILY DOSE: 5 MG MILLGRAM(S) EVERY DAYS
  4. ASPIRIN. [Suspect]
     Active Substance: ASPIRIN
     Dosage: DAILY DOSE: 100 MG MILLGRAM(S) EVERY DAYS
  5. DEKRISTOL [Concomitant]
     Active Substance: CHOLECALCIFEROL
     Dosage: DAILY DOSE: 1 DF DOSAGE FORM EVERY 14 DAYS
  6. TORSEMIDE. [Concomitant]
     Active Substance: TORSEMIDE
     Dosage: DAILY DOSE: 0.5 DF DOSAGE FORM EVERY DAYS
  7. IBUPROFEN. [Suspect]
     Active Substance: IBUPROFEN
     Dosage: DAILY DOSE: 1800 MG MILLGRAM(S) EVERY DAYS
  8. RAMIPRIL. [Concomitant]
     Active Substance: RAMIPRIL
     Dosage: DAILY DOSE: 5 MG MILLGRAM(S) EVERY DAYS

REACTIONS (3)
  - Peritonitis [Not Recovered/Not Resolved]
  - Gastric ulcer [Not Recovered/Not Resolved]
  - Gastric perforation [Not Recovered/Not Resolved]

NARRATIVE: CASE EVENT DATE: 20180617
